FAERS Safety Report 8602380 (Version 10)
Quarter: 2016Q4

REPORT INFORMATION
  Report Type: Report from Study
  Country: GB (occurrence: GB)
  Receive Date: 20120607
  Receipt Date: 20161130
  Transmission Date: 20170207
  Serious: Yes (Hospitalization, Other)
  Sender: FDA-Public Use
  Company Number: GB-JNJFOC-20120520750

PATIENT
  Age: 59 Year
  Sex: Female
  Weight: 81 kg

DRUGS (41)
  1. DEXAMETHASONE. [Suspect]
     Active Substance: DEXAMETHASONE
     Indication: COLITIS ULCERATIVE
     Route: 048
  2. FUROSEMIDE. [Concomitant]
     Active Substance: FUROSEMIDE
     Indication: DIURETIC THERAPY
     Route: 048
     Dates: start: 20110129, end: 20110202
  3. PARACETAMOL [Concomitant]
     Active Substance: ACETAMINOPHEN
     Indication: ANALGESIC THERAPY
     Route: 048
  4. CYCLIZINE [Concomitant]
     Active Substance: CYCLIZINE
     Indication: NAUSEA
     Route: 048
     Dates: start: 20101113, end: 20101113
  5. REMICADE [Suspect]
     Active Substance: INFLIXIMAB
     Indication: COLITIS ULCERATIVE
     Route: 042
     Dates: start: 20101118
  6. DEXAMETHASONE. [Suspect]
     Active Substance: DEXAMETHASONE
     Indication: COLITIS ULCERATIVE
     Dosage: ^QDS^
     Route: 048
     Dates: start: 20111126
  7. DEXAMETHASONE. [Suspect]
     Active Substance: DEXAMETHASONE
     Indication: CENTRAL NERVOUS SYSTEM LESION
     Route: 048
  8. PRAZEPAM [Concomitant]
     Active Substance: PRAZEPAM
     Route: 065
  9. COCODAMOL [Concomitant]
     Active Substance: ACETAMINOPHEN\CODEINE PHOSPHATE
     Indication: ANALGESIC THERAPY
     Dosage: 30/500 MG
     Route: 048
     Dates: start: 20110122, end: 20110201
  10. HYDROCORTISONE. [Concomitant]
     Active Substance: HYDROCORTISONE
     Route: 065
  11. DEXAMETHASONE. [Suspect]
     Active Substance: DEXAMETHASONE
     Indication: BRAIN OEDEMA
     Route: 048
  12. DEXAMETHASONE. [Suspect]
     Active Substance: DEXAMETHASONE
     Indication: HEADACHE
     Dosage: WEENING OFF
     Route: 048
     Dates: start: 20101126
  13. COCODAMOL [Concomitant]
     Active Substance: ACETAMINOPHEN\CODEINE PHOSPHATE
     Indication: ANALGESIC THERAPY
     Dosage: 30/500
     Route: 048
     Dates: start: 20101111, end: 20101120
  14. ENOXAPARIN [Concomitant]
     Active Substance: ENOXAPARIN
     Indication: THROMBOSIS PROPHYLAXIS
     Route: 058
     Dates: start: 20101111, end: 20101203
  15. CORTIFOAM [Concomitant]
     Active Substance: HYDROCORTISONE ACETATE
     Indication: COLITIS ULCERATIVE
     Route: 054
     Dates: start: 20101115, end: 20101129
  16. ORAMORPH [Concomitant]
     Active Substance: MORPHINE SULFATE
     Indication: HEADACHE
     Dosage: DOSE: 5-10 ML
     Route: 048
     Dates: start: 20101117, end: 20101202
  17. DEXAMETHASONE. [Suspect]
     Active Substance: DEXAMETHASONE
     Indication: CENTRAL NERVOUS SYSTEM LESION
     Dosage: ^QDS^
     Route: 048
     Dates: start: 20111126
  18. DEXAMETHASONE. [Suspect]
     Active Substance: DEXAMETHASONE
     Indication: CENTRAL NERVOUS SYSTEM LESION
     Dosage: WEENING OFF
     Route: 048
     Dates: start: 20101126
  19. PENTASA [Concomitant]
     Active Substance: MESALAMINE
     Indication: COLITIS ULCERATIVE
     Route: 054
     Dates: start: 20101117, end: 20101128
  20. PREDNISOLONE. [Concomitant]
     Active Substance: PREDNISOLONE
     Indication: COLITIS ULCERATIVE
     Route: 048
  21. DEXAMETHASONE. [Suspect]
     Active Substance: DEXAMETHASONE
     Indication: HEADACHE
     Dosage: ^QDS^
     Route: 048
     Dates: start: 20111126
  22. DEXAMETHASONE. [Suspect]
     Active Substance: DEXAMETHASONE
     Indication: VASCULITIS CEREBRAL
     Dosage: ^QDS^
     Route: 048
     Dates: start: 20111126
  23. DEXAMETHASONE. [Suspect]
     Active Substance: DEXAMETHASONE
     Indication: VASCULITIS CEREBRAL
     Dosage: WEENING OFF
     Route: 048
     Dates: start: 20101126
  24. HYDROCORTISONE. [Concomitant]
     Active Substance: HYDROCORTISONE
     Indication: COLITIS ULCERATIVE
     Route: 042
     Dates: start: 20101111, end: 20101122
  25. DEXAMETHASONE. [Suspect]
     Active Substance: DEXAMETHASONE
     Indication: BRAIN OEDEMA
     Dosage: ^QDS^
     Route: 048
     Dates: start: 20111126
  26. CALCICHEW D3 [Concomitant]
     Active Substance: CALCIUM\CHOLECALCIFEROL
     Indication: OSTEOPOROSIS
     Route: 048
  27. CALCICHEW D3 [Concomitant]
     Active Substance: CALCIUM\CHOLECALCIFEROL
     Indication: OSTEOPOROSIS
     Route: 048
     Dates: start: 2009
  28. OMEPRAZOLE. [Concomitant]
     Active Substance: OMEPRAZOLE
     Indication: GASTROINTESTINAL DISORDER THERAPY
     Route: 048
     Dates: start: 20101129, end: 20101202
  29. MOVICOL [Concomitant]
     Active Substance: POLYETHYLENE GLYCOL 3350\POTASSIUM CHLORIDE\SODIUM BICARBONATE\SODIUM CHLORIDE
     Indication: CONSTIPATION
     Route: 048
     Dates: start: 20101116, end: 20101119
  30. 5-ASA [Concomitant]
     Active Substance: MESALAMINE
     Dosage: PAST 6 MONTHS.
     Route: 065
  31. REMICADE [Suspect]
     Active Substance: INFLIXIMAB
     Indication: COLITIS ULCERATIVE
     Route: 042
  32. DEXAMETHASONE. [Suspect]
     Active Substance: DEXAMETHASONE
     Indication: BRAIN OEDEMA
     Dosage: WEENING OFF
     Route: 048
     Dates: start: 20101126
  33. CALCICHEW D3 [Concomitant]
     Active Substance: CALCIUM\CHOLECALCIFEROL
     Indication: OSTEOPENIA
     Route: 048
  34. PENTASA [Concomitant]
     Active Substance: MESALAMINE
     Indication: COLITIS ULCERATIVE
     Route: 048
  35. OMEPRAZOLE. [Concomitant]
     Active Substance: OMEPRAZOLE
     Indication: GASTROINTESTINAL DISORDER THERAPY
     Route: 048
  36. DEXAMETHASONE. [Suspect]
     Active Substance: DEXAMETHASONE
     Indication: COLITIS ULCERATIVE
     Dosage: WEENING OFF
     Route: 048
     Dates: start: 20101126
  37. DEXAMETHASONE. [Suspect]
     Active Substance: DEXAMETHASONE
     Indication: HEADACHE
     Route: 048
  38. DEXAMETHASONE. [Suspect]
     Active Substance: DEXAMETHASONE
     Indication: VASCULITIS CEREBRAL
     Route: 048
  39. CALCICHEW D3 [Concomitant]
     Active Substance: CALCIUM\CHOLECALCIFEROL
     Indication: OSTEOPENIA
     Route: 048
     Dates: start: 2009
  40. CYCLIZINE [Concomitant]
     Active Substance: CYCLIZINE
     Indication: NAUSEA
     Route: 042
     Dates: start: 20101113, end: 20101113
  41. SULFASALAZINE. [Concomitant]
     Active Substance: SULFASALAZINE
     Dosage: PAST 6 MONTHS
     Route: 065

REACTIONS (8)
  - Pneumothorax [Recovered/Resolved]
  - Hydronephrosis [Recovering/Resolving]
  - Central nervous system lesion [Recovered/Resolved]
  - Bronchopulmonary aspergillosis [Recovered/Resolved]
  - Cerebral haemorrhage [Unknown]
  - Spinal compression fracture [Recovered/Resolved]
  - Respiratory moniliasis [Recovered/Resolved]
  - Muscular weakness [Recovered/Resolved]

NARRATIVE: CASE EVENT DATE: 20101124
